FAERS Safety Report 10289953 (Version 2)
Quarter: 2014Q3

REPORT INFORMATION
  Report Type: Spontaneous
  Country: CO (occurrence: CO)
  Receive Date: 20140710
  Receipt Date: 20140814
  Transmission Date: 20150326
  Serious: Yes (Other)
  Sender: FDA-Public Use
  Company Number: BR-AMGEN-BRASP2014050903

PATIENT
  Age: 64 Year
  Sex: Male

DRUGS (8)
  1. OXALIPLATIN. [Concomitant]
     Active Substance: OXALIPLATIN
     Dosage: UNK
  2. ASPIRIN. [Concomitant]
     Active Substance: ASPIRIN
     Dosage: UNK
  3. 5 FU [Concomitant]
     Active Substance: FLUOROURACIL
     Dosage: UNK
  4. IRINOTECAN [Concomitant]
     Active Substance: IRINOTECAN
     Dosage: UNK
  5. VECTIBIX [Suspect]
     Active Substance: PANITUMUMAB
     Indication: PRODUCT USED FOR UNKNOWN INDICATION
     Dosage: UNK
     Route: 065
  6. BEVACIZUMAB [Concomitant]
     Active Substance: BEVACIZUMAB
     Dosage: UNK
  7. FOLINIC ACID [Concomitant]
     Active Substance: LEUCOVORIN
     Dosage: UNK
  8. CAPECITABINE [Concomitant]
     Active Substance: CAPECITABINE
     Dosage: UNK

REACTIONS (10)
  - Lung disorder [Unknown]
  - Neutropenia [Unknown]
  - Drug tolerance decreased [Unknown]
  - Hepatic lesion [Unknown]
  - Skin toxicity [Unknown]
  - Disease progression [Unknown]
  - Neuropathy peripheral [Unknown]
  - Drug effect incomplete [Unknown]
  - Bone lesion [Unknown]
  - Asthenia [Unknown]
